FAERS Safety Report 4597532-2 (Version None)
Quarter: 2005Q1

REPORT INFORMATION
  Report Type: 
  Country: None (occurrence: None)
  Receive Date: 20050303
  Receipt Date: 20041220
  Transmission Date: 20050727
  Serious: Yes (Other)
  Sender: FDA-Public Use
  Company Number: PHEH2004US13595

PATIENT
  Age: 48 Year
  Sex: Female

DRUGS (1)
  1. CLOZARIL [Suspect]
     Indication: SCHIZOPHRENIA, PARANOID TYPE
     Dosage: 550 MG, QD
     Route: 048
     Dates: start: 20021001

REACTIONS (9)
  - CATATONIA [None]
  - CHRONIC OBSTRUCTIVE PULMONARY DISEASE [None]
  - CONSTIPATION [None]
  - CONVULSION [None]
  - HEART RATE INCREASED [None]
  - MUTISM [None]
  - STARING [None]
  - VOMITING [None]
  - WEIGHT DECREASED [None]
